FAERS Safety Report 5766583-4 (Version None)
Quarter: 2008Q2

REPORT INFORMATION
  Report Type: 
  Country: None (occurrence: None)
  Receive Date: 20080610
  Receipt Date: 20080610
  Transmission Date: 20081010
  Serious: Yes (Other)
  Sender: FDA-Public Use
  Company Number: None

PATIENT
  Age: 68 Year
  Sex: Male
  Weight: 95.709 kg

DRUGS (2)
  1. TERBINAFINE HCL [Suspect]
     Indication: DYSGEUSIA
     Dosage: 250 QD PO 52 DOSES
     Route: 048
     Dates: end: 20080523
  2. FINASTERIDE [Concomitant]

REACTIONS (5)
  - ANOREXIA [None]
  - DYSGEUSIA [None]
  - NO THERAPEUTIC RESPONSE [None]
  - PHARMACEUTICAL PRODUCT COMPLAINT [None]
  - WEIGHT DECREASED [None]
